FAERS Safety Report 17997427 (Version 1)
Quarter: 2020Q3

REPORT INFORMATION
  Report Type: Report from Study
  Country: US (occurrence: US)
  Receive Date: 20200708
  Receipt Date: 20200708
  Transmission Date: 20201103
  Serious: Yes (Other)
  Sender: FDA-Public Use
  Company Number: US-ACTELION-A-US2018-181033

PATIENT
  Sex: Female
  Weight: 76.64 kg

DRUGS (15)
  1. OPSUMIT [Suspect]
     Active Substance: MACITENTAN
     Indication: PULMONARY ARTERIAL HYPERTENSION
     Dosage: 10 MG, QD
     Route: 048
     Dates: start: 20170816
  2. OFEV [Suspect]
     Active Substance: NINTEDANIB
     Indication: PRODUCT USED FOR UNKNOWN INDICATION
     Dosage: UNK
     Route: 065
     Dates: end: 201810
  3. COLCRYS [Concomitant]
     Active Substance: COLCHICINE
  4. BREO ELLIPTA [Concomitant]
     Active Substance: FLUTICASONE FUROATE\VILANTEROL TRIFENATATE
     Dosage: 100?25MC
  5. UPTRAVI [Suspect]
     Active Substance: SELEXIPAG
     Indication: PULMONARY ARTERIAL HYPERTENSION
     Dosage: 200 MCG, QD
     Route: 048
  6. BUMETANIDE. [Concomitant]
     Active Substance: BUMETANIDE
     Dosage: 1 MG (TITER)
  7. OXYCODONE [Concomitant]
     Active Substance: OXYCODONE
  8. PREDNISONE. [Concomitant]
     Active Substance: PREDNISONE
  9. PRAVASTATIN. [Concomitant]
     Active Substance: PRAVASTATIN
  10. FLUCONAZOLE. [Concomitant]
     Active Substance: FLUCONAZOLE
  11. UPTRAVI [Suspect]
     Active Substance: SELEXIPAG
     Dosage: 200 MCG, BID
     Route: 048
  12. CEFDINIR. [Concomitant]
     Active Substance: CEFDINIR
     Dosage: 300 MG
  13. CLOTRIMAZOLE. [Concomitant]
     Active Substance: CLOTRIMAZOLE
  14. LOSARTAN. [Concomitant]
     Active Substance: LOSARTAN
  15. NITROFURANTOIN. [Concomitant]
     Active Substance: NITROFURANTOIN

REACTIONS (17)
  - Arthralgia [Unknown]
  - Swelling [Unknown]
  - Rash [Unknown]
  - Myalgia [Unknown]
  - Nausea [Unknown]
  - Adverse event [Unknown]
  - Pain in extremity [Recovered/Resolved]
  - Cholecystectomy [Recovered/Resolved]
  - Pain [Unknown]
  - Vein disorder [Unknown]
  - Hot flush [Unknown]
  - Diarrhoea [Unknown]
  - Hypovitaminosis [Unknown]
  - Angina pectoris [Unknown]
  - Influenza like illness [Unknown]
  - Product dose omission issue [Unknown]
  - Infection [Unknown]
